FAERS Safety Report 7865136-1 (Version None)
Quarter: 2011Q4

REPORT INFORMATION
  Report Type: 
  Country: None (occurrence: None)
  Receive Date: 20111028
  Receipt Date: 20101020
  Transmission Date: 20120403
  Serious: No
  Sender: FDA-Public Use
  Company Number: US-GLAXOSMITHKLINE-A0887856A

PATIENT
  Age: 50 Year
  Sex: Male

DRUGS (3)
  1. ALBUTEROL [Concomitant]
  2. PREDNISONE [Concomitant]
  3. ADVAIR DISKUS 100/50 [Suspect]
     Indication: ASTHMA
     Dosage: 1PUFF TWICE PER DAY
     Route: 055
     Dates: start: 20080101

REACTIONS (2)
  - PRODUCT QUALITY ISSUE [None]
  - DRUG INEFFECTIVE [None]
